FAERS Safety Report 15110587 (Version 2)
Quarter: 2018Q3

REPORT INFORMATION
  Report Type: Spontaneous
  Country: US (occurrence: US)
  Receive Date: 20180705
  Receipt Date: 20180725
  Transmission Date: 20181010
  Serious: Yes (Disabling, Other)
  Sender: FDA-Public Use
  Company Number: US-MIST-TIR-2018-0639

PATIENT
  Age: 53 Year
  Sex: Female

DRUGS (2)
  1. RADIOACTIVE IODINE THERAPY [Suspect]
     Active Substance: SODIUM IODIDE I-131
     Indication: BASEDOW^S DISEASE
     Dates: start: 2012
  2. LEVOTHYROXINE. [Suspect]
     Active Substance: LEVOTHYROXINE
     Indication: SECONDARY HYPOTHYROIDISM
     Dosage: 125MCG AND 112MCG ON ALTERNATING DAYS
     Route: 048
     Dates: start: 2012

REACTIONS (3)
  - Keratoconus [Not Recovered/Not Resolved]
  - Blepharitis [Not Recovered/Not Resolved]
  - Blood thyroid stimulating hormone increased [Unknown]

NARRATIVE: CASE EVENT DATE: 2013
